FAERS Safety Report 9669619 (Version 1)
Quarter: 2013Q4

REPORT INFORMATION
  Report Type: Spontaneous
  Country: GB (occurrence: None)
  Receive Date: 20131101
  Receipt Date: 20131101
  Transmission Date: 20140711
  Serious: Yes (Hospitalization)
  Sender: FDA-Public Use
  Company Number: 2013AP009414

PATIENT
  Age: 52 Year
  Sex: Female

DRUGS (6)
  1. CITALOPRAM [Suspect]
  2. AMITRIPTYLINE [Suspect]
  3. DILTIAZEM [Suspect]
  4. DIHYDROCODEINE [Suspect]
  5. TEMAZEPAM [Suspect]
  6. DIAZEPAM [Suspect]

REACTIONS (4)
  - Toxicity to various agents [None]
  - Overdose [None]
  - Pneumonia aspiration [None]
  - Blood pressure decreased [None]
